FAERS Safety Report 7325324-X (Version None)
Quarter: 2011Q1

REPORT INFORMATION
  Report Type: 
  Country: None (occurrence: None)
  Receive Date: 20110302
  Receipt Date: 20110210
  Transmission Date: 20110831
  Serious: Yes (Hospitalization)
  Sender: FDA-Public Use
  Company Number: US-BAYER-201030128NA

PATIENT
  Sex: Female
  Weight: 79 kg

DRUGS (6)
  1. NEXIUM [Concomitant]
     Indication: ANTACID THERAPY
     Dosage: 40 MG, UNK
     Dates: start: 20060413, end: 20060807
  2. SEROQUEL [Concomitant]
     Indication: DEPRESSION
     Dosage: UNK
     Dates: start: 20060801
  3. CLONAZEPAM [Concomitant]
     Indication: PANIC ATTACK
     Dosage: 0.5 MG, UNK
     Dates: start: 20060807, end: 20070511
  4. LOPRESSOR [Concomitant]
  5. YASMIN [Suspect]
     Indication: MENSTRUAL DISORDER
     Dosage: UNK UNK, UNK
     Route: 048
     Dates: start: 20050201, end: 20060817
  6. WELLBUTRIN [Concomitant]
     Indication: ANTIDEPRESSANT THERAPY
     Dosage: 300 MG, UNK
     Dates: start: 20060716, end: 20061206

REACTIONS (6)
  - CHEST PAIN [None]
  - DEEP VEIN THROMBOSIS [None]
  - PULMONARY EMBOLISM [None]
  - DYSPNOEA [None]
  - ANXIETY [None]
  - DEPRESSION [None]
